FAERS Safety Report 7298625-1 (Version None)
Quarter: 2011Q1

REPORT INFORMATION
  Report Type: 
  Country: None (occurrence: None)
  Receive Date: 20110217
  Receipt Date: 20110214
  Transmission Date: 20110831
  Serious: Yes (Death)
  Sender: FDA-Public Use
  Company Number: PHHY2011AR12011

PATIENT
  Sex: Male

DRUGS (1)
  1. EXFORGE [Suspect]
     Indication: HYPERTENSION
     Dosage: 5 MG OF AMLO DAILY AND 160 MG OF VALS
     Route: 048

REACTIONS (3)
  - LUNG CYST [None]
  - LUNG DISORDER [None]
  - BRONCHIAL DISORDER [None]
